FAERS Safety Report 15143424 (Version 1)
Quarter: 2018Q3

REPORT INFORMATION
  Report Type: Report from Study
  Country: CO (occurrence: CO)
  Receive Date: 20180713
  Receipt Date: 20180713
  Transmission Date: 20181010
  Serious: Yes (Other)
  Sender: FDA-Public Use
  Company Number: CO-JNJFOC-20180714352

PATIENT
  Sex: Male
  Weight: 70 kg

DRUGS (1)
  1. RISPERDAL CONSTA [Suspect]
     Active Substance: RISPERIDONE
     Indication: SCHIZOPHRENIA
     Route: 030
     Dates: start: 20180509

REACTIONS (3)
  - Fall [Unknown]
  - Generalised tonic-clonic seizure [Recovering/Resolving]
  - Ear injury [Not Recovered/Not Resolved]

NARRATIVE: CASE EVENT DATE: 2018
